FAERS Safety Report 8130025-4 (Version None)
Quarter: 2012Q1

REPORT INFORMATION
  Report Type: 
  Country: None (occurrence: None)
  Receive Date: 20120210
  Receipt Date: 20120130
  Transmission Date: 20120608
  Serious: Yes (Death, Other)
  Sender: FDA-Public Use
  Company Number: KR-ROCHE-1036425

PATIENT

DRUGS (6)
  1. MABTHERA [Suspect]
     Indication: LYMPHOMA
  2. CETUXIMAB [Suspect]
     Indication: COLORECTAL CANCER
  3. HERCEPTIN [Suspect]
     Indication: BREAST CANCER
  4. AVASTIN [Suspect]
     Indication: COLORECTAL CANCER
  5. AVASTIN [Suspect]
     Indication: HEAD AND NECK CANCER
  6. CETUXIMAB [Suspect]
     Indication: HEAD AND NECK CANCER

REACTIONS (4)
  - PNEUMONIA [None]
  - INTERSTITIAL LUNG DISEASE [None]
  - HYPERSENSITIVITY [None]
  - BRONCHOSPASM [None]
